FAERS Safety Report 15993961 (Version 1)
Quarter: 2019Q1

REPORT INFORMATION
  Report Type: Spontaneous
  Country: US (occurrence: US)
  Receive Date: 20190125
  Receipt Date: 20190125
  Transmission Date: 20190418
  Serious: Yes (Death)
  Sender: FDA-Public Use
  Company Number: None

PATIENT
  Age: 51 Year
  Sex: Male
  Weight: 105.3 kg

DRUGS (2)
  1. BEVACIZUMAB 10MG/KG [Suspect]
     Active Substance: BEVACIZUMAB
     Indication: GLIOBLASTOMA
     Route: 042
     Dates: start: 20180821, end: 20181002
  2. NIVOLUMAB 240 MG [Suspect]
     Active Substance: NIVOLUMAB
     Indication: GLIOBLASTOMA
     Route: 042
     Dates: start: 20180821, end: 20181002

REACTIONS (6)
  - Seizure [None]
  - Gait disturbance [None]
  - Neoplasm progression [None]
  - Aphasia [None]
  - Therapy cessation [None]
  - Confusional state [None]

NARRATIVE: CASE EVENT DATE: 20190111
